FAERS Safety Report 6380445-3 (Version None)
Quarter: 2009Q3

REPORT INFORMATION
  Report Type: 
  Country: None (occurrence: None)
  Receive Date: 20090924
  Receipt Date: 20090909
  Transmission Date: 20100115
  Serious: Yes (Other)
  Sender: FDA-Public Use
  Company Number: 8051916

PATIENT
  Age: 9 Month
  Sex: Male
  Weight: 10.75 kg

DRUGS (3)
  1. KEPPRA [Suspect]
     Indication: EPILEPSY
     Dosage: 1500 MG TRP
     Route: 064
  2. VITAMIN TAB [Concomitant]
  3. NIFEDIPINE [Concomitant]

REACTIONS (5)
  - MATERNAL DRUGS AFFECTING FOETUS [None]
  - PREMATURE BABY [None]
  - PREMATURE LABOUR [None]
  - PSYCHOMOTOR SKILLS IMPAIRED [None]
  - SPEECH DISORDER DEVELOPMENTAL [None]
